FAERS Safety Report 5046824-1 (Version None)
Quarter: 2006Q3

REPORT INFORMATION
  Report Type: 
  Country: None (occurrence: None)
  Receive Date: 20060710
  Receipt Date: 20060630
  Transmission Date: 20061208
  Serious: Yes (Hospitalization)
  Sender: FDA-Public Use
  Company Number: PHBS2006IN09990

PATIENT
  Sex: Female

DRUGS (1)
  1. VOVERAN [Suspect]
     Indication: GINGIVAL PAIN

REACTIONS (1)
  - HYPERCHLORHYDRIA [None]
